FAERS Safety Report 5394910-9 (Version None)
Quarter: 2007Q3

REPORT INFORMATION
  Report Type: 
  Country: None (occurrence: None)
  Receive Date: 20070720
  Receipt Date: 20070705
  Transmission Date: 20080115
  Serious: Yes (Hospitalization)
  Sender: FDA-Public Use
  Company Number: 2007RR-08458

PATIENT
  Age: 63 Year
  Sex: Male

DRUGS (3)
  1. FLECAINIDE(FLECAINIDE) UNKNOWN [Suspect]
     Indication: TACHYCARDIA
  2. BENDROFLUMETHIAZIDE(BENDROFLUMETHIAZIDE) [Suspect]
     Indication: HYPERTENSION
     Dosage: 2.5 MG,
  3. FELODIPINE [Concomitant]

REACTIONS (2)
  - CARDIOTOXICITY [None]
  - DRUG INTERACTION [None]
